FAERS Safety Report 19441132 (Version 1)
Quarter: 2021Q2

REPORT INFORMATION
  Report Type: Spontaneous
  Country: US (occurrence: US)
  Receive Date: 20210617
  Receipt Date: 20210617
  Transmission Date: 20210717
  Serious: Yes (Other)
  Sender: FDA-Public Use
  Company Number: None

PATIENT
  Age: 62 Year
  Sex: Male
  Weight: 97.65 kg

DRUGS (9)
  1. HYDROCHLOROTHIAZIDE. [Suspect]
     Active Substance: HYDROCHLOROTHIAZIDE
     Indication: HYPERTENSION
     Dosage: ?          QUANTITY:1 TABLET(S);?
     Route: 048
     Dates: start: 20210609, end: 20210617
  2. BABY ASPIRIN [Concomitant]
     Active Substance: ASPIRIN
  3. GLIPIZIDE. [Concomitant]
     Active Substance: GLIPIZIDE
  4. MULTI [Concomitant]
  5. METHFORMIN [Concomitant]
  6. VIT D [Concomitant]
     Active Substance: VITAMIN D NOS
  7. INSULIN R + N [Concomitant]
  8. COZAAR [Concomitant]
     Active Substance: LOSARTAN POTASSIUM
  9. VITAMIN B12 [Concomitant]
     Active Substance: CYANOCOBALAMIN

REACTIONS (6)
  - Eye pain [None]
  - Back pain [None]
  - Headache [None]
  - Dizziness [None]
  - Tinnitus [None]
  - Muscle tightness [None]

NARRATIVE: CASE EVENT DATE: 20210613
